FAERS Safety Report 4668881-4 (Version None)
Quarter: 2005Q2

REPORT INFORMATION
  Report Type: 
  Country: None (occurrence: None)
  Receive Date: 20050523
  Receipt Date: 20040614
  Transmission Date: 20051028
  Serious: Yes (Other)
  Sender: FDA-Public Use
  Company Number: PHBS2004BE07990

PATIENT
  Age: 71 Year
  Sex: Male

DRUGS (4)
  1. ALKERAN [Concomitant]
     Dates: start: 20031120, end: 20040616
  2. MEDROL [Concomitant]
  3. ZOMETA [Suspect]
     Indication: MULTIPLE MYELOMA
     Dosage: 4 MG
     Route: 042
     Dates: start: 20030619, end: 20040611
  4. THALIDOMIDE [Concomitant]

REACTIONS (3)
  - GENERAL PHYSICAL HEALTH DETERIORATION [None]
  - OSTEONECROSIS [None]
  - PRIMARY SEQUESTRUM [None]
